FAERS Safety Report 5078920-7 (Version None)
Quarter: 2006Q3

REPORT INFORMATION
  Report Type: 
  Country: None (occurrence: None)
  Receive Date: 20060814
  Receipt Date: 20060801
  Transmission Date: 20061208
  Serious: Yes (Other)
  Sender: FDA-Public Use
  Company Number: PHBS2006JP11616

PATIENT
  Age: 60 Year
  Sex: Female

DRUGS (3)
  1. AREDIA [Suspect]
     Indication: METASTASES TO BONE
     Dosage: 4.5 MG/DAY
     Route: 042
     Dates: start: 20030801, end: 20060601
  2. HERCEPTIN [Concomitant]
     Dosage: 7.2 ML/DAY
     Route: 042
     Dates: start: 20040101
  3. NAVELBINE [Concomitant]
     Dosage: 20 MG/DAY
     Route: 042
     Dates: start: 20060401

REACTIONS (6)
  - ANAEMIA [None]
  - BREAST CANCER [None]
  - JAW DISORDER [None]
  - MALIGNANT NEOPLASM PROGRESSION [None]
  - NEUTROPHIL COUNT DECREASED [None]
  - OSTEONECROSIS [None]
